FAERS Safety Report 6829426-3 (Version None)
Quarter: 2010Q3

REPORT INFORMATION
  Report Type: 
  Country: None (occurrence: None)
  Receive Date: 20100709
  Receipt Date: 20070307
  Transmission Date: 20110219
  Serious: Yes (Hospitalization, Other)
  Sender: FDA-Public Use
  Company Number: US-PFIZER INC-2007010676

PATIENT
  Sex: Female
  Weight: 58.1 kg

DRUGS (4)
  1. CHANTIX [Suspect]
     Indication: SMOKING CESSATION THERAPY
     Dates: start: 20070128
  2. TRAZODONE [Suspect]
     Indication: INSOMNIA
     Dosage: DAILY EVERY HS
     Dates: start: 20070101
  3. FLAGYL [Suspect]
     Indication: VAGINITIS BACTERIAL
  4. YASMIN [Concomitant]

REACTIONS (14)
  - ABDOMINAL PAIN [None]
  - BACTERIAL TEST [None]
  - BLOOD AMYLASE INCREASED [None]
  - GASTRITIS [None]
  - HEADACHE [None]
  - LIPASE INCREASED [None]
  - MUSCULOSKELETAL DISCOMFORT [None]
  - NASAL CONGESTION [None]
  - PANCREATITIS [None]
  - PEPTIC ULCER [None]
  - PROTEIN URINE [None]
  - URINE KETONE BODY [None]
  - VAGINITIS BACTERIAL [None]
  - VULVOVAGINAL MYCOTIC INFECTION [None]
